FAERS Safety Report 9947779 (Version 1)
Quarter: 2014Q1

REPORT INFORMATION
  Report Type: Report from Study
  Country: US (occurrence: US)
  Receive Date: 20140303
  Receipt Date: 20140303
  Transmission Date: 20141002
  Serious: No
  Sender: FDA-Public Use
  Company Number: US-ABBVIE-13P-163-1059035-00

PATIENT
  Age: 60 Year
  Sex: Female

DRUGS (6)
  1. HUMIRA [Suspect]
     Indication: PSORIASIS
     Dates: start: 201301
  2. ADVAIR [Concomitant]
     Indication: ASTHMA
     Dosage: 250/50 1 PUFF DAILY
  3. NASONEX [Concomitant]
     Indication: HYPERSENSITIVITY
     Dosage: 50 MCG 1 SPRAY EACH NOSTRIL
     Route: 045
  4. RATADINE [Concomitant]
     Indication: GASTROOESOPHAGEAL REFLUX DISEASE
     Dosage: 50 MG TWICE DAILY
  5. THERATEARS [Concomitant]
     Indication: DRY EYE
     Dosage: 2 DROPS DAILY TO EACH EYE
  6. PROTOPIC OINTMENT .1 PERCENT [Concomitant]
     Indication: PSORIASIS
     Dosage: ON SKIN
     Route: 061

REACTIONS (6)
  - Fatigue [Not Recovered/Not Resolved]
  - Tinnitus [Not Recovered/Not Resolved]
  - Visual impairment [Not Recovered/Not Resolved]
  - Depression [Not Recovered/Not Resolved]
  - Dry mouth [Not Recovered/Not Resolved]
  - Back pain [Not Recovered/Not Resolved]
